FAERS Safety Report 8458802-0 (Version None)
Quarter: 2012Q2

REPORT INFORMATION
  Report Type: 
  Country: None (occurrence: None)
  Receive Date: 20120622
  Receipt Date: 20120618
  Transmission Date: 20120825
  Serious: Yes (Other)
  Sender: FDA-Public Use
  Company Number: TR-ROXANE LABORATORIES, INC.-2012-RO-01436RO

PATIENT
  Age: 48 Year
  Sex: Male

DRUGS (8)
  1. LENALIDOMIDE [Suspect]
     Indication: MULTIPLE MYELOMA
     Dosage: 25 MG
  2. BORTEZOMIB [Suspect]
     Indication: MULTIPLE MYELOMA
  3. DEXAMETHASONE [Suspect]
     Indication: MULTIPLE MYELOMA
     Dosage: 40 MG
  4. DEXAMETHASONE [Suspect]
  5. THALIDOMIDE [Suspect]
     Indication: MULTIPLE MYELOMA
     Dosage: 200 MG
  6. CYCLOPHOSPHAMIDE [Suspect]
     Indication: MULTIPLE MYELOMA
     Route: 042
  7. ASPIRIN [Suspect]
     Indication: THROMBOSIS PROPHYLAXIS
  8. ZOLEDRONOC ACID [Suspect]
     Indication: MULTIPLE MYELOMA
     Route: 042

REACTIONS (6)
  - DEEP VEIN THROMBOSIS [None]
  - STAPHYLOCOCCAL ABSCESS [None]
  - PLASMACYTOMA [None]
  - RIB FRACTURE [None]
  - DISEASE PROGRESSION [None]
  - OSTEONECROSIS [None]
